FAERS Safety Report 22528744 (Version 1)
Quarter: 2023Q2

REPORT INFORMATION
  Report Type: Other
  Country: FR (occurrence: FR)
  Receive Date: 20230607
  Receipt Date: 20230607
  Transmission Date: 20230722
  Serious: Yes (Hospitalization)
  Sender: FDA-Public Use
  Company Number: None

PATIENT

DRUGS (3)
  1. FLUCONAZOLE [Interacting]
     Active Substance: FLUCONAZOLE
     Indication: Cellulitis
     Dosage: UNK
     Route: 048
     Dates: start: 20230405, end: 20230414
  2. ALFACALCIDOL [Interacting]
     Active Substance: ALFACALCIDOL
     Indication: Hypoparathyroidism
     Dosage: 2.25 MICROGRAM, QD
     Route: 048
     Dates: end: 20230417
  3. CALCIUM CARBONATE [Interacting]
     Active Substance: CALCIUM CARBONATE
     Indication: Hypoparathyroidism
     Dosage: 1000 MILLIGRAM, BID
     Route: 048
     Dates: end: 20230417

REACTIONS (3)
  - Hypercalcaemia [Recovering/Resolving]
  - Acute kidney injury [Recovered/Resolved]
  - Drug interaction [Recovered/Resolved]

NARRATIVE: CASE EVENT DATE: 20230405
